FAERS Safety Report 7517305-8 (Version None)
Quarter: 2011Q2

REPORT INFORMATION
  Report Type: 
  Country: None (occurrence: None)
  Receive Date: 20110601
  Receipt Date: 20110526
  Transmission Date: 20111010
  Serious: Yes (Other)
  Sender: FDA-Public Use
  Company Number: JP-PFIZER INC-2011105935

PATIENT

DRUGS (2)
  1. VFEND [Suspect]
     Indication: ASPERGILLUS TEST POSITIVE
     Dosage: 400 MG, UNK
     Route: 048
  2. VFEND [Suspect]
     Indication: ASPERGILLOSIS

REACTIONS (1)
  - PARALYSIS [None]
